FAERS Safety Report 11258210 (Version 1)
Quarter: 2015Q2

REPORT INFORMATION
  Report Type: Spontaneous
  Country: US (occurrence: None)
  Receive Date: 20150617
  Receipt Date: 20150617
  Transmission Date: 20150821
  Serious: No
  Sender: FDA-Public Use
  Company Number: 2014TASUS000591

PATIENT
  Age: 52 Year
  Sex: Female
  Weight: 88.4 kg

DRUGS (9)
  1. SOMA [Concomitant]
     Active Substance: CARISOPRODOL
  2. WELLBUTRIN [Concomitant]
     Active Substance: BUPROPION HYDROCHLORIDE
  3. HETLIOZ [Suspect]
     Active Substance: TASIMELTEON
     Indication: CIRCADIAN RHYTHM SLEEP DISORDER
     Route: 048
     Dates: start: 20141030
  4. LORAZEPAM. [Concomitant]
     Active Substance: LORAZEPAM
  5. AMOXICILLIN (AMOXICILLIN TRIHYDRATE) [Concomitant]
     Active Substance: AMOXICILLIN
  6. VICODIN [Concomitant]
     Active Substance: ACETAMINOPHEN\HYDROCODONE BITARTRATE
  7. PROGESTERONE. [Concomitant]
     Active Substance: PROGESTERONE
  8. ROZEREM (RAMELTEON) [Concomitant]
  9. ESTRACE (ESTRADIOL) [Concomitant]

REACTIONS (3)
  - Somnolence [None]
  - Drug effect decreased [None]
  - Middle insomnia [None]

NARRATIVE: CASE EVENT DATE: 20141115
